FAERS Safety Report 8435878-8 (Version None)
Quarter: 2012Q2

REPORT INFORMATION
  Report Type: 
  Country: None (occurrence: None)
  Receive Date: 20120614
  Receipt Date: 20120611
  Transmission Date: 20120825
  Serious: Yes (Other)
  Sender: FDA-Public Use
  Company Number: US-ROCHE-1075562

PATIENT
  Sex: Female

DRUGS (17)
  1. NASONEX [Concomitant]
     Dosage: 50 MCG EACH NOSTRIL EVERYDAY
     Route: 045
  2. XOLAIR [Suspect]
     Indication: ASTHMA
     Route: 058
     Dates: start: 20120504
  3. VYTORIN [Concomitant]
  4. ASPIRIN [Concomitant]
  5. ADVAIR DISKUS 100/50 [Concomitant]
  6. NEXIUM [Concomitant]
  7. MICARDIS [Concomitant]
  8. ALLEGRA [Concomitant]
     Indication: HYPERSENSITIVITY
  9. RESTASIS [Concomitant]
  10. EPIPEN [Concomitant]
     Dosage: 0.3 MG/0.3 ML AS NEEDED
  11. PROAIR HFA [Concomitant]
  12. IPRATROPIUM + SALBUTAMOL [Concomitant]
     Dosage: 0.5 MG/3 MG
  13. DEXILANT [Concomitant]
  14. ASTEPRO [Concomitant]
     Dosage: RECEIVED EVERYDAY
     Route: 045
  15. PEPCID [Concomitant]
  16. SINGULAIR [Concomitant]
  17. XOPENEX [Concomitant]
     Dosage: 1.25 MG/3ML VIA NEBULIZER

REACTIONS (1)
  - CARDIOMEGALY [None]
